FAERS Safety Report 5644536-4 (Version None)
Quarter: 2008Q1

REPORT INFORMATION
  Report Type: 
  Country: None (occurrence: None)
  Receive Date: 20080229
  Receipt Date: 20070321
  Transmission Date: 20080703
  Serious: No
  Sender: FDA-Public Use
  Company Number: A0640304A

PATIENT
  Sex: Female

DRUGS (2)
  1. VALTREX [Suspect]
     Indication: GENITAL HERPES
     Dosage: 500MG SEE DOSAGE TEXT
     Route: 048
  2. STEROID [Concomitant]
     Route: 048
     Dates: start: 20060101

REACTIONS (4)
  - DRUG INEFFECTIVE [None]
  - FATIGUE [None]
  - HERPES SIMPLEX [None]
  - PHARYNGOLARYNGEAL PAIN [None]
